FAERS Safety Report 9637938 (Version 1)
Quarter: 2013Q4

REPORT INFORMATION
  Report Type: Spontaneous
  Country: KR (occurrence: KR)
  Receive Date: 20131022
  Receipt Date: 20131022
  Transmission Date: 20140711
  Serious: Yes (Other)
  Sender: FDA-Public Use
  Company Number: KR-JNJFOC-20131010404

PATIENT
  Age: 51 Year
  Sex: Male

DRUGS (2)
  1. INFLIXIMAB, RECOMBINANT [Suspect]
     Indication: BEHCET^S SYNDROME
     Route: 042
  2. PREDNISOLONE [Suspect]
     Indication: BEHCET^S SYNDROME
     Route: 065

REACTIONS (3)
  - Pulmonary tuberculosis [Recovered/Resolved]
  - Mycobacterium abscessus infection [Unknown]
  - Off label use [Unknown]
